FAERS Safety Report 6676334-7 (Version None)
Quarter: 2010Q2

REPORT INFORMATION
  Report Type: 
  Country: None (occurrence: None)
  Receive Date: 20100408
  Receipt Date: 20100330
  Transmission Date: 20101027
  Serious: Yes (Hospitalization)
  Sender: FDA-Public Use
  Company Number: DSA_42862_2010

PATIENT
  Sex: Male

DRUGS (2)
  1. XENAZINE [Suspect]
     Indication: TARDIVE DYSKINESIA
     Dosage: (12.5 MG QAM ORAL), (12.5 MG BID ORAL)
     Route: 048
     Dates: start: 20100127, end: 20100209
  2. XENAZINE [Suspect]
     Indication: TARDIVE DYSKINESIA
     Dosage: (12.5 MG QAM ORAL), (12.5 MG BID ORAL)
     Route: 048
     Dates: start: 20100210

REACTIONS (2)
  - CHEST PAIN [None]
  - DYSPNOEA [None]
